FAERS Safety Report 15684375 (Version 2)
Quarter: 2019Q1

REPORT INFORMATION
  Report Type: Spontaneous
  Country: JP (occurrence: JP)
  Receive Date: 20181204
  Receipt Date: 20190313
  Transmission Date: 20190417
  Serious: Yes (Hospitalization)
  Sender: FDA-Public Use
  Company Number: JP-EISAI MEDICAL RESEARCH-EC-2018-048669

PATIENT
  Age: 72 Year
  Sex: Male

DRUGS (3)
  1. LOXONIN [Suspect]
     Active Substance: LOXOPROFEN SODIUM
     Indication: ABDOMINAL PAIN UPPER
     Dosage: FREQUENCY AND DOSE NOT PROVIDED
     Route: 048
  2. LOXONIN [Suspect]
     Active Substance: LOXOPROFEN SODIUM
     Dosage: ^LARGE AMOUNT^ (DOSE NOT PROVIDED)
     Route: 048
     Dates: start: 20181125
  3. LENVIMA [Suspect]
     Active Substance: LENVATINIB
     Indication: HEPATOCELLULAR CARCINOMA
     Route: 048
     Dates: start: 20180614, end: 20181125

REACTIONS (2)
  - Abdominal pain upper [Recovered/Resolved]
  - Hepatic function abnormal [Unknown]

NARRATIVE: CASE EVENT DATE: 20181125
